FAERS Safety Report 24607266 (Version 2)
Quarter: 2024Q4

REPORT INFORMATION
  Report Type: Spontaneous
  Country: ES (occurrence: ES)
  Receive Date: 20241112
  Receipt Date: 20241112
  Transmission Date: 20250114
  Serious: Yes (Other)
  Sender: TERSERA THERAPEUTICS
  Company Number: ES-ESTEVE-2024-01518

PATIENT

DRUGS (22)
  1. PRIALT [Suspect]
     Active Substance: ZICONOTIDE ACETATE
     Indication: Cancer pain
     Dosage: 0.5 MICROGRAM, QD WITH INCREMENTS OF 0.5 ?G/WK
     Dates: start: 200811
  2. PRIALT [Suspect]
     Active Substance: ZICONOTIDE ACETATE
     Dosage: 5.1  ?G/D
  3. PRIALT [Suspect]
     Active Substance: ZICONOTIDE ACETATE
     Dosage: 13.99  ?G/D
     Dates: start: 2013
  4. PRIALT [Suspect]
     Active Substance: ZICONOTIDE ACETATE
     Dosage: 14.65  ?G/D D
     Dates: start: 2013
  5. PRIALT [Suspect]
     Active Substance: ZICONOTIDE ACETATE
     Dosage: 14.98  ?G/D
     Dates: start: 2014
  6. PRIALT [Suspect]
     Active Substance: ZICONOTIDE ACETATE
     Dosage: 14.31 ?G/D
     Dates: start: 2015
  7. PRIALT [Suspect]
     Active Substance: ZICONOTIDE ACETATE
     Dosage: 16.988  ?G/D
     Dates: start: 2016
  8. PRIALT [Suspect]
     Active Substance: ZICONOTIDE ACETATE
     Dosage: 19.89 UNK
     Dates: start: 2017
  9. PRIALT [Suspect]
     Active Substance: ZICONOTIDE ACETATE
     Dosage: 19.62  ?G/D
     Dates: start: 2018
  10. PRIALT [Suspect]
     Active Substance: ZICONOTIDE ACETATE
     Dosage: 21.62  ?G/D
     Dates: start: 202212
  11. PRIALT [Suspect]
     Active Substance: ZICONOTIDE ACETATE
     Dosage: 21.62  ?G/D
     Dates: start: 202312
  12. AMITRIPTYLINE [Concomitant]
     Active Substance: AMITRIPTYLINE
     Indication: Product used for unknown indication
     Dosage: UNK, QD
     Route: 048
     Dates: start: 2017
  13. AMITRIPTYLINE [Concomitant]
     Active Substance: AMITRIPTYLINE
     Dosage: 75 MG, AT NIGHT
     Route: 048
     Dates: start: 202312
  14. ACETAMINOPHEN [Concomitant]
     Active Substance: ACETAMINOPHEN
     Indication: Pain
     Dosage: UNK, AS NECESSARY
     Route: 065
     Dates: start: 2017
  15. ACETAMINOPHEN [Concomitant]
     Active Substance: ACETAMINOPHEN
     Dosage: 1 G G ON DEMAND FOR MILD PAIN
     Route: 065
     Dates: start: 202312
  16. METAMIZOLE [Concomitant]
     Active Substance: METAMIZOLE
     Indication: Pain
     Dosage: AS NECESSARY
     Route: 065
     Dates: start: 2017
  17. METAMIZOLE [Concomitant]
     Active Substance: METAMIZOLE
     Dosage: 575 MG  ON DEMAND FOR MILD PAIN
     Route: 065
     Dates: start: 202312
  18. Mst [Concomitant]
     Indication: Product used for unknown indication
     Dosage: UNK, AS NECESSARY
     Dates: start: 2017
  19. FENTANYL [Concomitant]
     Active Substance: FENTANYL
     Indication: Product used for unknown indication
     Dosage: UNK, AS NECESSARY
     Route: 065
  20. LIDOCAINE [Concomitant]
     Active Substance: LIDOCAINE
     Indication: Implant site pain
     Dosage: 12 HOURS DAILY
     Dates: start: 2017
  21. LIDOCAINE [Concomitant]
     Active Substance: LIDOCAINE
     Dosage: UNK
     Dates: start: 202312
  22. MORPHINE [Concomitant]
     Active Substance: MORPHINE
     Dosage: 20 MG, IN CASE OF SEVERE
     Dates: start: 202312

REACTIONS (5)
  - Psychotic symptom [Recovered/Resolved]
  - Cognitive disorder [Recovered/Resolved]
  - Disorientation [Recovered/Resolved]
  - Implant site pain [Recovered/Resolved]
  - Prescribed overdose [Unknown]

NARRATIVE: CASE EVENT DATE: 20170101
